FAERS Safety Report 11577327 (Version 1)
Quarter: 2015Q3

REPORT INFORMATION
  Report Type: Spontaneous
  Country: US (occurrence: US)
  Receive Date: 20150916
  Receipt Date: 20150916
  Transmission Date: 20151125
  Serious: No
  Sender: FDA-Public Use
  Company Number: US-ELI_LILLY_AND_COMPANY-US201306002974

PATIENT
  Sex: Female
  Weight: 86.62 kg

DRUGS (2)
  1. HUMALOG [Suspect]
     Active Substance: INSULIN LISPRO
     Dosage: UNK
     Route: 058
  2. HUMALOG [Suspect]
     Active Substance: INSULIN LISPRO
     Dosage: 11 U, SINGLE
     Route: 058
     Dates: start: 20130606, end: 20130606

REACTIONS (2)
  - Somnolence [Unknown]
  - Blood glucose increased [Unknown]
